FAERS Safety Report 9340957 (Version 1)
Quarter: 2013Q2

REPORT INFORMATION
  Report Type: Spontaneous
  Country: US (occurrence: US)
  Receive Date: 20130610
  Receipt Date: 20130610
  Transmission Date: 20140414
  Serious: Yes (Other)
  Sender: FDA-Public Use
  Company Number: CHPA2013US009521

PATIENT
  Age: 70 Year
  Sex: Male

DRUGS (5)
  1. EXCEDRIN MIGRAINE [Suspect]
     Indication: SINUS HEADACHE
     Dosage: 2 DF, QW
     Route: 048
     Dates: start: 1998
  2. EXCEDRIN MIGRAINE [Suspect]
     Indication: MIGRAINE
  3. BAYER ASPIRIN [Concomitant]
     Dosage: UNK, UNK
  4. ATENOLOL [Concomitant]
     Dosage: 25 MG, QAM
  5. LIPITOR [Concomitant]
     Dosage: 20 MG, QPM

REACTIONS (2)
  - Coronary artery occlusion [Recovered/Resolved]
  - Off label use [Unknown]
